FAERS Safety Report 5623561-3 (Version None)
Quarter: 2008Q1

REPORT INFORMATION
  Report Type: 
  Country: None (occurrence: None)
  Receive Date: 20080212
  Receipt Date: 20080201
  Transmission Date: 20080703
  Serious: Yes (Hospitalization)
  Sender: FDA-Public Use
  Company Number: DE-PFIZER INC-2008011800

PATIENT
  Sex: Male

DRUGS (2)
  1. CHANTIX [Suspect]
     Indication: SMOKING CESSATION THERAPY
     Route: 048
     Dates: start: 20080101, end: 20080116
  2. GEVILON [Suspect]
     Indication: TYPE IV HYPERLIPIDAEMIA
     Route: 048

REACTIONS (4)
  - HEPATITIS [None]
  - INSOMNIA [None]
  - NAUSEA [None]
  - VOMITING [None]
